FAERS Safety Report 19987761 (Version 1)
Quarter: 2021Q4

REPORT INFORMATION
  Report Type: Spontaneous
  Country: CA (occurrence: CA)
  Receive Date: 20211022
  Receipt Date: 20211022
  Transmission Date: 20220303
  Serious: Yes (Other)
  Sender: FDA-Public Use
  Company Number: CA-PFIZER INC-202101064354

PATIENT
  Age: 65 Year
  Sex: Male

DRUGS (3)
  1. BRAFTOVI [Suspect]
     Active Substance: ENCORAFENIB
     Indication: Colorectal cancer metastatic
     Dosage: 300 MG, DAILY
  2. CETUXIMAB [Concomitant]
     Active Substance: CETUXIMAB
  3. ONDANSETRON [Concomitant]
     Active Substance: ONDANSETRON
     Dosage: UNK, 3X/DAY

REACTIONS (7)
  - Ventricular tachycardia [Unknown]
  - Skin lesion [Recovered/Resolved]
  - Wound haemorrhage [Recovered/Resolved]
  - Fatigue [Unknown]
  - Nausea [Unknown]
  - Decreased appetite [Recovered/Resolved]
  - General physical health deterioration [Unknown]

NARRATIVE: CASE EVENT DATE: 20210101
